FAERS Safety Report 9918202 (Version 2)
Quarter: 2014Q1

REPORT INFORMATION
  Report Type: Spontaneous
  Country: US (occurrence: US)
  Receive Date: 20140223
  Receipt Date: 20140314
  Transmission Date: 20141002
  Serious: Yes (Other)
  Sender: FDA-Public Use
  Company Number: US-ROCHE-707709

PATIENT
  Age: 74 Year
  Sex: Female

DRUGS (6)
  1. AVASTIN [Suspect]
     Indication: PRODUCT USED FOR UNKNOWN INDICATION
     Route: 065
  2. LUCENTIS [Suspect]
     Indication: AGE-RELATED MACULAR DEGENERATION
     Dosage: 4 - 7 WEEKS
     Route: 065
     Dates: start: 20090828, end: 20120711
  3. PROPARACAINE [Concomitant]
     Dosage: 0.2CC
     Route: 065
  4. BETADINE [Concomitant]
     Dosage: 5%
     Route: 065
  5. OCUFLOX [Concomitant]
     Dosage: 5
     Route: 065
  6. ERYTHROMYCIN OINTMENT [Concomitant]
     Route: 065

REACTIONS (3)
  - Chalazion [Recovered/Resolved]
  - Hordeolum [Unknown]
  - Blepharitis [Unknown]
